FAERS Safety Report 5819808-0 (Version None)
Quarter: 2008Q3

REPORT INFORMATION
  Report Type: 
  Country: None (occurrence: None)
  Receive Date: 20080717
  Receipt Date: 20080709
  Transmission Date: 20090109
  Serious: Yes (Death, Hospitalization, Other)
  Sender: FDA-Public Use
  Company Number: 2008AL005196

PATIENT
  Age: 72 Year
  Sex: Female

DRUGS (2)
  1. DIGOXIN [Suspect]
     Indication: HEART RATE INCREASED
     Dosage: 0.125MG DAILY PO, 0.25MG PO
     Route: 048
     Dates: start: 20080419
  2. DIGOXIN [Suspect]
     Indication: HEART RATE INCREASED
     Dosage: 0.125MG DAILY PO, 0.25MG PO
     Route: 048

REACTIONS (6)
  - HALLUCINATION [None]
  - HEART RATE DECREASED [None]
  - INCORRECT DOSE ADMINISTERED [None]
  - MYOCARDIAL INFARCTION [None]
  - THERAPEUTIC AGENT TOXICITY [None]
  - TREMOR [None]
